FAERS Safety Report 14587430 (Version 2)
Quarter: 2018Q1

REPORT INFORMATION
  Report Type: Report from Study
  Country: FR (occurrence: FR)
  Receive Date: 20180301
  Receipt Date: 20180305
  Transmission Date: 20180509
  Serious: Yes (Death, Hospitalization)
  Sender: FDA-Public Use
  Company Number: FR-PFIZER INC-2018079751

PATIENT
  Age: 67 Year

DRUGS (5)
  1. ACTISKENAN [Concomitant]
     Active Substance: MORPHINE SULFATE
     Indication: PAIN IN EXTREMITY
     Dosage: 10 MG, AS NEEDED
     Route: 048
     Dates: start: 20180124
  2. CRIZOTINIB [Suspect]
     Active Substance: CRIZOTINIB
     Indication: NON-SMALL CELL LUNG CANCER
     Dosage: 250 MG, 1X/DAY
     Route: 048
     Dates: start: 20171228
  3. SOLUPRED /00016201/ [Concomitant]
     Active Substance: PREDNISOLONE
     Indication: PAIN IN EXTREMITY
     Dosage: 20 MG, 2X/DAY
     Route: 048
     Dates: start: 20180124
  4. DUROGESIC [Concomitant]
     Active Substance: FENTANYL
     Indication: PAIN IN EXTREMITY
     Dosage: 1 PATCH EVERY 72 HOURS
     Route: 062
     Dates: start: 20180124
  5. LAROXYL [Concomitant]
     Active Substance: AMITRIPTYLINE HYDROCHLORIDE
     Indication: PAIN IN EXTREMITY
     Dosage: 10 GTT, DAILY
     Route: 048
     Dates: start: 20180124

REACTIONS (1)
  - General physical health deterioration [Fatal]

NARRATIVE: CASE EVENT DATE: 20180220
